FAERS Safety Report 15633179 (Version 1)
Quarter: 2018Q4

REPORT INFORMATION
  Report Type: Spontaneous
  Country: US (occurrence: US)
  Receive Date: 20181118
  Receipt Date: 20181118
  Transmission Date: 20190205
  Serious: No
  Sender: FDA-Public Use
  Company Number: None

PATIENT
  Age: 28 Year
  Sex: Female
  Weight: 60.33 kg

DRUGS (1)
  1. MIRENA [Suspect]
     Active Substance: LEVONORGESTREL

REACTIONS (6)
  - Pyrexia [None]
  - Device expulsion [None]
  - Pelvic pain [None]
  - Headache [None]
  - Syncope [None]
  - Haemorrhage [None]

NARRATIVE: CASE EVENT DATE: 20181118
